FAERS Safety Report 17857190 (Version 1)
Quarter: 2020Q2

REPORT INFORMATION
  Report Type: Spontaneous
  Country: US (occurrence: US)
  Receive Date: 20200603
  Receipt Date: 20200603
  Transmission Date: 20200714
  Serious: No
  Sender: FDA-Public Use
  Company Number: US-BIOGEN-2019BI00803700

PATIENT
  Age: 23 Year
  Sex: Female

DRUGS (1)
  1. SPINRAZA [Suspect]
     Active Substance: NUSINERSEN
     Indication: SPINAL MUSCULAR ATROPHY
     Route: 037
     Dates: start: 20191015

REACTIONS (4)
  - Post procedural complication [Recovered/Resolved]
  - Procedural nausea [Recovered/Resolved]
  - Post lumbar puncture syndrome [Recovered/Resolved]
  - Procedural vomiting [Recovered/Resolved]

NARRATIVE: CASE EVENT DATE: 20191029
